FAERS Safety Report 7872155-8 (Version None)
Quarter: 2011Q4

REPORT INFORMATION
  Report Type: 
  Country: None (occurrence: None)
  Receive Date: 20111029
  Receipt Date: 20110315
  Transmission Date: 20120403
  Serious: No
  Sender: FDA-Public Use
  Company Number: US-AMGEN-USASP2011014342

PATIENT
  Age: 61 Year
  Sex: Male

DRUGS (2)
  1. ENBREL [Suspect]
     Indication: RHEUMATOID ARTHRITIS
     Dosage: 50 MG, QWK
     Dates: start: 20101121
  2. METHOTREXATE [Concomitant]

REACTIONS (6)
  - SLEEP STUDY ABNORMAL [None]
  - PULMONARY FUNCTION TEST ABNORMAL [None]
  - HEADACHE [None]
  - VENTILATION PERFUSION MISMATCH [None]
  - HYPOXIA [None]
  - NAUSEA [None]
